FAERS Safety Report 16762268 (Version 2)
Quarter: 2019Q3

REPORT INFORMATION
  Report Type: Spontaneous
  Country: BE (occurrence: BE)
  Receive Date: 20190831
  Receipt Date: 20190909
  Transmission Date: 20191005
  Serious: Yes (Other)
  Sender: FDA-Public Use
  Company Number: BE-AUROBINDO-AUR-APL-2019-057033

PATIENT

DRUGS (1)
  1. ALENDRONIC ACID TABLETS [Suspect]
     Active Substance: ALENDRONIC ACID
     Indication: OSTEOPOROSIS
     Dosage: UNK, 1 UNKNOWN UNITS, ONCE A DAY
     Route: 048
     Dates: start: 2004

REACTIONS (5)
  - Fall [Unknown]
  - Forearm fracture [Recovering/Resolving]
  - Atypical femur fracture [Recovered/Resolved]
  - Balance disorder [Unknown]
  - Femur fracture [Recovering/Resolving]

NARRATIVE: CASE EVENT DATE: 2009
